FAERS Safety Report 8267849-9 (Version None)
Quarter: 2012Q2

REPORT INFORMATION
  Report Type: 
  Country: None (occurrence: None)
  Receive Date: 20120405
  Receipt Date: 20120405
  Transmission Date: 20120825
  Serious: Yes (Hospitalization)
  Sender: FDA-Public Use
  Company Number: None

PATIENT
  Age: 76 Year
  Sex: Male
  Weight: 98 kg

DRUGS (9)
  1. NORVASC [Concomitant]
  2. OMEPRAZOLE [Concomitant]
  3. MAZZIDE [Concomitant]
  4. ASPIRIN [Suspect]
     Indication: CORONARY ARTERY DISEASE
     Dosage: 81MG DAILY PO CHRONIC
     Route: 048
  5. WARFARIN SODIUM [Suspect]
     Indication: ATRIAL FIBRILLATION
     Dosage: 5MG/7.5 MG M-SAT/SUN PO CHRONIC
     Route: 048
  6. SERTRALINE HYDROCHLORIDE [Concomitant]
  7. CLONAZEPAM [Concomitant]
  8. PREDNISONE TAB [Concomitant]
  9. LORTAB [Concomitant]

REACTIONS (7)
  - DECREASED APPETITE [None]
  - GASTROINTESTINAL HAEMORRHAGE [None]
  - BLOOD ALBUMIN ABNORMAL [None]
  - ASTHENIA [None]
  - ABNORMAL FAECES [None]
  - DEVICE RELATED INFECTION [None]
  - COLONIC FISTULA [None]
